FAERS Safety Report 10264284 (Version 1)
Quarter: 2014Q2

REPORT INFORMATION
  Report Type: Spontaneous
  Country: US (occurrence: None)
  Receive Date: 20140624
  Receipt Date: 20140624
  Transmission Date: 20141212
  Serious: Yes (Disabling)
  Sender: FDA-Public Use
  Company Number: None

PATIENT
  Age: 52 Year
  Sex: Female
  Weight: 44.91 kg

DRUGS (1)
  1. LEVAQUIN [Suspect]
     Indication: SINUSITIS
     Route: 048

REACTIONS (14)
  - Joint crepitation [None]
  - Mental disorder [None]
  - Impaired work ability [None]
  - Aphasia [None]
  - Fatigue [None]
  - Loss of consciousness [None]
  - Weight decreased [None]
  - Hypotonia [None]
  - Grip strength decreased [None]
  - Muscular weakness [None]
  - Bedridden [None]
  - Paraesthesia [None]
  - Altered state of consciousness [None]
  - Neuralgia [None]
